FAERS Safety Report 7779986-3 (Version None)
Quarter: 2011Q3

REPORT INFORMATION
  Report Type: 
  Country: None (occurrence: None)
  Receive Date: 20110927
  Receipt Date: 20110913
  Transmission Date: 20111222
  Serious: No
  Sender: FDA-Public Use
  Company Number: US-JNJFOC-20110906224

PATIENT
  Sex: Female
  Weight: 48.54 kg

DRUGS (3)
  1. INVEGA [Suspect]
     Indication: BIPOLAR DISORDER
     Dosage: 6MG TABLET CUT IN HALF/ONCE DAILY
     Route: 048
     Dates: start: 20110829
  2. CELEXA [Concomitant]
     Indication: BIPOLAR DISORDER
     Route: 048
     Dates: start: 20110701
  3. INVEGA [Suspect]
     Route: 048
     Dates: start: 20110401, end: 20110829

REACTIONS (4)
  - DRUG PRESCRIBING ERROR [None]
  - DRUG INEFFECTIVE [None]
  - WRONG TECHNIQUE IN DRUG USAGE PROCESS [None]
  - ABNORMAL BEHAVIOUR [None]
